FAERS Safety Report 25349884 (Version 2)
Quarter: 2025Q2

REPORT INFORMATION
  Report Type: Report from Study
  Country: US (occurrence: US)
  Receive Date: 20250523
  Receipt Date: 20250610
  Transmission Date: 20250716
  Serious: Yes (Other)
  Sender: AMGEN
  Company Number: US-AMGEN-USASL2025097691

PATIENT
  Age: 73 Year
  Sex: Female

DRUGS (5)
  1. ENBREL [Suspect]
     Active Substance: ETANERCEPT
     Indication: Rheumatoid arthritis
     Dosage: 50 MILLIGRAM, QWK
     Route: 065
     Dates: start: 2011
  2. ENBREL [Suspect]
     Active Substance: ETANERCEPT
     Dosage: 50 MILLIGRAM, QWK
     Route: 065
  3. KRYSTEXXA [Suspect]
     Active Substance: PEGLOTICASE
     Indication: Gout
     Dosage: UNK UNK, Q2WK (15 MONTHS)
     Route: 040
     Dates: start: 2023
  4. KRYSTEXXA [Suspect]
     Active Substance: PEGLOTICASE
     Dosage: UNK UNK, Q2WK (15 MONTHS)
     Route: 040
     Dates: start: 202408, end: 202408
  5. ASPIRIN [Concomitant]
     Active Substance: ASPIRIN
     Dosage: 81 MILLIGRAM, QD
     Route: 065

REACTIONS (3)
  - Rheumatoid arthritis [Unknown]
  - Immunodeficiency [Unknown]
  - Gout [Unknown]

NARRATIVE: CASE EVENT DATE: 20230101
